FAERS Safety Report 20119164 (Version 1)
Quarter: 2021Q4

REPORT INFORMATION
  Report Type: Spontaneous
  Country: CH (occurrence: CH)
  Receive Date: 20211126
  Receipt Date: 20211126
  Transmission Date: 20220303
  Serious: Yes (Death, Other)
  Sender: FDA-Public Use
  Company Number: CH-009507513-2111CHE008713

PATIENT
  Sex: Male

DRUGS (4)
  1. PEMBROLIZUMAB [Suspect]
     Active Substance: PEMBROLIZUMAB
     Indication: Squamous cell carcinoma of the tongue
     Dosage: FIRST-LINE, 6 CYCLES IN TOTAL
     Dates: start: 201909, end: 201912
  2. PEMBROLIZUMAB [Suspect]
     Active Substance: PEMBROLIZUMAB
     Dosage: COMBINED WITH RADIOTHERAPY
     Dates: start: 20200109, end: 20200212
  3. CARBOPLATIN [Suspect]
     Active Substance: CARBOPLATIN
     Indication: Squamous cell carcinoma of the tongue
     Dosage: FIRST-LINE, 6 CYCLES IN TOTAL
     Dates: start: 201909, end: 201912
  4. FLUOROURACIL SODIUM [Suspect]
     Active Substance: FLUOROURACIL SODIUM
     Indication: Squamous cell carcinoma of the tongue
     Dosage: FIRST-LINE, 6 CYCLES IN TOTAL
     Dates: start: 201909, end: 201912

REACTIONS (1)
  - Malignant neoplasm progression [Fatal]

NARRATIVE: CASE EVENT DATE: 20200201
